FAERS Safety Report 24437749 (Version 2)
Quarter: 2024Q4

REPORT INFORMATION
  Report Type: Report from Study
  Country: CA (occurrence: CA)
  Receive Date: 20241015
  Receipt Date: 20241115
  Transmission Date: 20250115
  Serious: Yes (Hospitalization, Other)
  Sender: SANDOZ
  Company Number: CA-SANDOZ-SDZ2023CA057707

PATIENT
  Age: 54 Year
  Sex: Female

DRUGS (5)
  1. HYRIMOZ [Suspect]
     Active Substance: ADALIMUMAB-ADAZ
     Indication: Ankylosing spondylitis
     Dosage: 40 MG, Q2W, (PREFILLED PEN)
     Route: 058
     Dates: start: 20231003
  2. HYRIMOZ [Suspect]
     Active Substance: ADALIMUMAB-ADAZ
     Dosage: UNK
     Route: 065
     Dates: start: 202404
  3. INFLUENZA VIRUS VACCINE [Concomitant]
     Active Substance: INFLUENZA VIRUS VACCINE
     Indication: Product used for unknown indication
     Dosage: UNK
     Route: 065
     Dates: start: 202401
  4. PREVNAR 20 [Concomitant]
     Active Substance: PNEUMOCOCCAL 20-VALENT CONJUGATE VACCINE
     Indication: Product used for unknown indication
     Dosage: UNK
     Route: 065
     Dates: start: 202401
  5. TETANUS TOXOID ADSORBED (VACCINE) [Concomitant]
     Active Substance: CLOSTRIDIUM TETANI TOXOID ANTIGEN (FORMALDEHYDE INACTIVATED)
     Indication: Product used for unknown indication
     Dosage: UNK (LAST WEEK)
     Route: 065
     Dates: start: 202401

REACTIONS (5)
  - Diverticulitis [Recovering/Resolving]
  - Lyme disease [Unknown]
  - Pneumonia [Unknown]
  - Pain [Unknown]
  - Hepatic enzyme increased [Unknown]

NARRATIVE: CASE EVENT DATE: 20231101
